FAERS Safety Report 5081878-8 (Version None)
Quarter: 2006Q3

REPORT INFORMATION
  Report Type: 
  Country: None (occurrence: None)
  Receive Date: 20060816
  Receipt Date: 20051219
  Transmission Date: 20061208
  Serious: Yes (Death, Hospitalization)
  Sender: FDA-Public Use
  Company Number: FR-ABBOTT-05P-056-0320119-00

PATIENT
  Sex: Female
  Weight: 98 kg

DRUGS (19)
  1. HUMIRA [Suspect]
     Indication: RHEUMATOID ARTHRITIS
     Route: 058
     Dates: start: 20050628, end: 20051208
  2. RIFINAH [Concomitant]
     Indication: ANTIBIOTIC PROPHYLAXIS
     Route: 048
     Dates: start: 20050606, end: 20050905
  3. ACETAMINOPHEN [Concomitant]
     Indication: PAIN
     Route: 048
     Dates: start: 20040101, end: 20051213
  4. ACETAMINOPHEN [Concomitant]
     Indication: RHEUMATOID ARTHRITIS
  5. EFFEXOR XR [Concomitant]
     Indication: DEPRESSION
     Route: 048
     Dates: start: 20040101, end: 20051213
  6. METHOTREXATE [Concomitant]
     Indication: RHEUMATOID ARTHRITIS
     Route: 048
     Dates: start: 20040701, end: 20041001
  7. METHOTREXATE [Concomitant]
     Route: 048
     Dates: start: 20041001, end: 20041201
  8. METHOTREXATE [Concomitant]
     Route: 048
     Dates: start: 20041201, end: 20051213
  9. CETIRIZINE HCL [Concomitant]
     Indication: INJECTION SITE ERYTHEMA
     Route: 048
     Dates: start: 20051018, end: 20051213
  10. MONOCRIXO LP [Concomitant]
     Indication: BACK PAIN
     Route: 048
     Dates: start: 20051101, end: 20051213
  11. PREDNISONE [Concomitant]
     Indication: RHEUMATOID ARTHRITIS
     Dates: start: 20040701, end: 20041001
  12. PREDNISONE [Concomitant]
     Dates: start: 20041001, end: 20050725
  13. PREDNISONE [Concomitant]
     Dates: start: 20050726, end: 20050906
  14. PREDNISONE [Concomitant]
     Dates: start: 20050907, end: 20050914
  15. PREDNISONE [Concomitant]
     Dates: start: 20050915, end: 20050922
  16. PREDNISONE [Concomitant]
     Dates: start: 20050923, end: 20050930
  17. PREDNISONE [Concomitant]
     Dates: start: 20051001, end: 20051001
  18. PREDNISONE [Concomitant]
     Dosage: DOSE INCREASE DUE TO INCREASE RA PAIN
     Dates: start: 20051002, end: 20051127
  19. PREDNISONE [Concomitant]
     Dates: start: 20051128, end: 20051213

REACTIONS (5)
  - BACTERIAL INFECTION [None]
  - CHOLECYSTITIS [None]
  - HAEMORRHAGIC CEREBRAL INFARCTION [None]
  - LYMPHOMA [None]
  - PANCREATITIS [None]
